FAERS Safety Report 11291434 (Version 1)
Quarter: 2015Q3

REPORT INFORMATION
  Report Type: Spontaneous
  Country: US (occurrence: None)
  Receive Date: 20150721
  Receipt Date: 20150721
  Transmission Date: 20151125
  Serious: No
  Sender: FDA-Public Use
  Company Number: None

PATIENT
  Age: 81 Year
  Sex: Female
  Weight: 56.25 kg

DRUGS (7)
  1. C [Concomitant]
  2. D [Concomitant]
  3. ASPERIN [Concomitant]
  4. MAGNESCIUM [Concomitant]
  5. MULTI [Concomitant]
  6. VITAMIN B12 [Concomitant]
     Active Substance: CYANOCOBALAMIN
  7. MONTELUKAST SOD [Suspect]
     Active Substance: MONTELUKAST SODIUM
     Route: 048
     Dates: start: 20150423, end: 20150428

REACTIONS (3)
  - Abnormal dreams [None]
  - Heart rate increased [None]
  - Sleep disorder [None]

NARRATIVE: CASE EVENT DATE: 20150423
